FAERS Safety Report 16456247 (Version 1)
Quarter: 2019Q3

REPORT INFORMATION
  Report Type: Spontaneous
  Country: US (occurrence: US)
  Receive Date: 20190619
  Receipt Date: 20190619
  Transmission Date: 20191004
  Serious: Yes (Hospitalization)
  Sender: FDA-Public Use
  Company Number: None

PATIENT
  Age: 40 Year
  Sex: Female
  Weight: 146.7 kg

DRUGS (1)
  1. EMGALITY [Suspect]
     Active Substance: GALCANEZUMAB-GNLM
     Indication: MIGRAINE
     Dosage: ?          QUANTITY:1 INJECTION(S);OTHER FREQUENCY:ONCE A MONTH;?
     Route: 061
     Dates: start: 20190318, end: 20190619

REACTIONS (4)
  - Dizziness [None]
  - Atrial fibrillation [None]
  - Cerebrovascular accident [None]
  - Loss of consciousness [None]

NARRATIVE: CASE EVENT DATE: 20190516
